FAERS Safety Report 7157913-X (Version None)
Quarter: 2010Q4

REPORT INFORMATION
  Report Type: 
  Country: None (occurrence: None)
  Receive Date: 20101214
  Receipt Date: 20101210
  Transmission Date: 20110411
  Serious: Yes (Other)
  Sender: FDA-Public Use
  Company Number: DE-MERCK-1011DEU00077

PATIENT
  Age: 38 Year
  Sex: Male
  Weight: 71 kg

DRUGS (3)
  1. ISENTRESS [Suspect]
     Indication: HIV INFECTION
     Route: 048
     Dates: start: 20090929
  2. EMTRICITABINE AND TENOFOVIR DISOPROXIL FUMARATE [Suspect]
     Indication: HIV INFECTION
     Route: 048
     Dates: start: 20090929
  3. BUDESONIDE AND FORMOTEROL FUMARATE [Suspect]
     Indication: ASTHMA
     Route: 055

REACTIONS (1)
  - OSTEONECROSIS [None]
